FAERS Safety Report 19359498 (Version 1)
Quarter: 2021Q2

REPORT INFORMATION
  Report Type: Report from Study
  Country: FR (occurrence: FR)
  Receive Date: 20210602
  Receipt Date: 20210602
  Transmission Date: 20210717
  Serious: Yes (Hospitalization)
  Sender: FDA-Public Use
  Company Number: FR-SHIRE-FR201901705

PATIENT
  Age: 72 Year
  Sex: Female
  Weight: 69 kg

DRUGS (24)
  1. TEDUGLUTIDE [Suspect]
     Active Substance: TEDUGLUTIDE
     Dosage: 3.6 MILLIGRAM (0.05 MG/KG), QD
     Route: 065
     Dates: start: 20190712, end: 20191209
  2. MONURIL [Concomitant]
     Active Substance: FOSFOMYCIN TROMETHAMINE
     Indication: PROPHYLAXIS
     Dosage: 1 INTERNATIONAL UNIT, 1/WEEK
     Route: 048
     Dates: start: 20200213
  3. TEDUGLUTIDE [Suspect]
     Active Substance: TEDUGLUTIDE
     Dosage: 3.4 MILLIGRAM (0.05 MG/KG), QD
     Route: 065
     Dates: start: 20160728, end: 20190711
  4. TEDUGLUTIDE [Suspect]
     Active Substance: TEDUGLUTIDE
     Dosage: 3.4 MILLIGRAM (0.05 MG/KG), QD
     Route: 065
     Dates: start: 20191210
  5. TEDUGLUTIDE [Suspect]
     Active Substance: TEDUGLUTIDE
     Indication: SHORT-BOWEL SYNDROME
     Dosage: 3.45 MILLIGRAM (0.05 MG/KG), 6 DOSES PER WEEK
     Route: 065
     Dates: start: 20160628
  6. TEDUGLUTIDE [Suspect]
     Active Substance: TEDUGLUTIDE
     Dosage: 3.6 MILLIGRAM (0.05 MG/KG), QD
     Route: 065
     Dates: start: 20190712, end: 20191209
  7. TEDUGLUTIDE [Suspect]
     Active Substance: TEDUGLUTIDE
     Dosage: 3.4 MILLIGRAM (0.05 MG/KG), QD
     Route: 065
     Dates: start: 20191210
  8. CEFOTAXIME [Concomitant]
     Active Substance: CEFOTAXIME SODIUM
     Indication: SEPSIS
  9. TEDUGLUTIDE [Suspect]
     Active Substance: TEDUGLUTIDE
     Dosage: 3.4 MILLIGRAM (0.05 MG/KG), QD
     Route: 065
     Dates: start: 20160728, end: 20190711
  10. TEDUGLUTIDE [Suspect]
     Active Substance: TEDUGLUTIDE
     Dosage: 3.6 MILLIGRAM (0.05 MG/KG), QD
     Route: 065
     Dates: start: 20190712, end: 20191209
  11. GENTAMICIN. [Concomitant]
     Active Substance: GENTAMICIN
     Indication: ABDOMINAL PAIN UPPER
  12. AMIKACINE [Concomitant]
     Active Substance: AMIKACIN
     Indication: INFECTION
     Dosage: 1.5 GRAM
     Route: 065
     Dates: start: 20200210, end: 20200212
  13. TEDUGLUTIDE [Suspect]
     Active Substance: TEDUGLUTIDE
     Indication: SHORT-BOWEL SYNDROME
     Dosage: 3.45 MILLIGRAM (0.05 MG/KG), 6 DOSES PER WEEK
     Route: 065
     Dates: start: 20160628
  14. TEDUGLUTIDE [Suspect]
     Active Substance: TEDUGLUTIDE
     Indication: SHORT-BOWEL SYNDROME
     Dosage: 3.45 MILLIGRAM (0.05 MG/KG), 6 DOSES PER WEEK
     Route: 065
     Dates: start: 20160628
  15. FLAGYL [Concomitant]
     Active Substance: METRONIDAZOLE\METRONIDAZOLE HYDROCHLORIDE
     Indication: ABDOMINAL PAIN UPPER
  16. TEDUGLUTIDE [Suspect]
     Active Substance: TEDUGLUTIDE
     Indication: SHORT-BOWEL SYNDROME
     Dosage: 3.45 MILLIGRAM (0.05 MG/KG), 6 DOSES PER WEEK
     Route: 065
     Dates: start: 20160628
  17. TEDUGLUTIDE [Suspect]
     Active Substance: TEDUGLUTIDE
     Dosage: 3.4 MILLIGRAM (0.05 MG/KG), QD
     Route: 065
     Dates: start: 20191210
  18. MONURIL [Concomitant]
     Active Substance: FOSFOMYCIN TROMETHAMINE
     Indication: URINARY TRACT INFECTION
  19. TAZOCILLINE [Concomitant]
     Active Substance: PIPERACILLIN SODIUM\TAZOBACTAM SODIUM
     Indication: INFECTION
     Dosage: 4 UNK, TID
     Route: 065
     Dates: start: 20200205, end: 20200212
  20. TEDUGLUTIDE [Suspect]
     Active Substance: TEDUGLUTIDE
     Dosage: 3.4 MILLIGRAM (0.05 MG/KG), QD
     Route: 065
     Dates: start: 20160728, end: 20190711
  21. CLINDAMYCIN. [Concomitant]
     Active Substance: CLINDAMYCIN
     Indication: INFECTION
     Dosage: 600 MILLIGRAM, TID
     Route: 048
     Dates: start: 20200205, end: 20200212
  22. TEDUGLUTIDE [Suspect]
     Active Substance: TEDUGLUTIDE
     Dosage: 3.4 MILLIGRAM (0.05 MG/KG), QD
     Route: 065
     Dates: start: 20160728, end: 20190711
  23. TEDUGLUTIDE [Suspect]
     Active Substance: TEDUGLUTIDE
     Dosage: 3.6 MILLIGRAM (0.05 MG/KG), QD
     Route: 065
     Dates: start: 20190712, end: 20191209
  24. TEDUGLUTIDE [Suspect]
     Active Substance: TEDUGLUTIDE
     Dosage: 3.4 MILLIGRAM (0.05 MG/KG), QD
     Route: 065
     Dates: start: 20191210

REACTIONS (1)
  - Anaemia [Recovered/Resolved]

NARRATIVE: CASE EVENT DATE: 20181226
